FAERS Safety Report 6103038-1 (Version None)
Quarter: 2009Q1

REPORT INFORMATION
  Report Type: 
  Country: None (occurrence: None)
  Receive Date: 20090305
  Receipt Date: 20090304
  Transmission Date: 20090719
  Serious: Yes (Hospitalization)
  Sender: FDA-Public Use
  Company Number: PHHO2006SE16868

PATIENT
  Sex: Female
  Weight: 89 kg

DRUGS (10)
  1. LOTREL [Suspect]
     Indication: HYPERTENSION
     Dosage: LEVEL 1
     Route: 048
     Dates: start: 20050516, end: 20050612
  2. LOTREL [Suspect]
     Dosage: LEVEL 2
     Route: 048
     Dates: start: 20050613, end: 20050706
  3. LOTREL [Suspect]
     Dosage: LEVEL 3
     Route: 048
     Dates: start: 20050707, end: 20050802
  4. LOTREL [Suspect]
     Dosage: UNK
  5. COZAAR [Concomitant]
     Dosage: UNK, UNK
     Dates: start: 20011010
  6. ENALAPRIL [Concomitant]
     Dosage: UNK, UNK
     Dates: start: 20060907
  7. LIPITOR [Concomitant]
     Dosage: UNK, UNK
  8. LANTUS [Concomitant]
     Dosage: UNK, UNK
     Dates: start: 20060531
  9. EMCONCOR [Concomitant]
  10. TROMBYL [Concomitant]

REACTIONS (6)
  - BLOOD PRESSURE DECREASED [None]
  - CARDIAC FAILURE [None]
  - CONCOMITANT DISEASE PROGRESSION [None]
  - DYSPNOEA [None]
  - OEDEMA [None]
  - PULMONARY ARTERY DILATATION [None]
